FAERS Safety Report 8165420-0 (Version None)
Quarter: 2012Q1

REPORT INFORMATION
  Report Type: 
  Country: None (occurrence: None)
  Receive Date: 20120103
  Receipt Date: 20111012
  Transmission Date: 20120608
  Serious: No
  Sender: FDA-Public Use
  Company Number: AE-2011-002262

PATIENT
  Age: 68 Year
  Sex: Male
  Weight: 70.3075 kg

DRUGS (10)
  1. OMEPRAZOLE [Concomitant]
  2. LEVOTHYROXINE SODIUM [Concomitant]
  3. ACETAMINOPHEN [Concomitant]
  4. INCIVEK [Suspect]
     Dosage: 2250 MG (750 MG, 1 IN 8 HR), ORAL
     Route: 048
     Dates: start: 20111006
  5. HYDROCODONE BITARTRATE [Concomitant]
  6. LOSARTAN POTASSIUM [Concomitant]
  7. PEGASYS [Concomitant]
  8. RIBAVIRIN [Concomitant]
  9. SYMBICORT (SYMBICORT TURBUHALER ^DRACO^) [Concomitant]
  10. REQUIP [Concomitant]

REACTIONS (4)
  - PYREXIA [None]
  - DYSGEUSIA [None]
  - CHILLS [None]
  - VOMITING [None]
